FAERS Safety Report 18369190 (Version 2)
Quarter: 2020Q4

REPORT INFORMATION
  Report Type: Report from Study
  Country: None (occurrence: ES)
  Receive Date: 20201011
  Receipt Date: 20201013
  Transmission Date: 20210114
  Serious: Yes (Other)
  Sender: FDA-Public Use
  Company Number: ES-ABBVIE-20K-144-3599918-00

PATIENT
  Age: 77 Year
  Sex: Female
  Weight: 62 kg

DRUGS (2)
  1. DUODOPA [Suspect]
     Active Substance: CARBIDOPA\LEVODOPA
     Indication: PARKINSON^S DISEASE
     Route: 050
     Dates: start: 20180516, end: 202008
  2. DUODOPA [Suspect]
     Active Substance: CARBIDOPA\LEVODOPA
     Route: 050
     Dates: start: 202008

REACTIONS (6)
  - Stoma site discharge [Recovering/Resolving]
  - Abdominal pain [Recovering/Resolving]
  - Dizziness [Recovering/Resolving]
  - Tremor [Recovering/Resolving]
  - Urinary tract infection [Not Recovered/Not Resolved]
  - Feeling abnormal [Unknown]

NARRATIVE: CASE EVENT DATE: 20200930
